FAERS Safety Report 18078968 (Version 1)
Quarter: 2020Q3

REPORT INFORMATION
  Report Type: Other
  Country: FR (occurrence: FR)
  Receive Date: 20200728
  Receipt Date: 20200728
  Transmission Date: 20201103
  Serious: Yes (Other)
  Sender: FDA-Public Use
  Company Number: FR-ROCHE-2645040

PATIENT

DRUGS (7)
  1. MYCOPHENOLATE MOFETIL. [Suspect]
     Active Substance: MYCOPHENOLATE MOFETIL
     Indication: PROPHYLAXIS AGAINST TRANSPLANT REJECTION
     Route: 048
  2. TACROLIMUS. [Suspect]
     Active Substance: TACROLIMUS
     Indication: PROPHYLAXIS AGAINST TRANSPLANT REJECTION
     Route: 048
  3. PREDNISONE. [Concomitant]
     Active Substance: PREDNISONE
     Dosage: FOR 2 DAYS AND 0.5 MG/KG/D FOR 2 DAYS, AND PROGRESSIVELY TAPERED UNTIL 10 MG/D AND DISCONTINUED ON D
  4. THYMOGLOBULINE [Concomitant]
     Active Substance: LAPINE T-LYMPHOCYTE IMMUNE GLOBULIN
     Dosage: THE INITIAL DOSE WAS 1 MG/KG; DOSES WERE ADJUSTED ACCORDING TO SHEEP ROSETTE LEVEL AND LATER ON ACCO
  5. SOLU?MEDROL [Concomitant]
     Active Substance: METHYLPREDNISOLONE SODIUM SUCCINATE
     Dosage: DAYS 0 AND 1
  6. BACTRIM [Concomitant]
     Active Substance: SULFAMETHOXAZOLE\TRIMETHOPRIM
     Indication: ANTIFUNGAL PROPHYLAXIS
     Dosage: 800/160 MG
  7. SIROLIMUS. [Suspect]
     Active Substance: SIROLIMUS
     Indication: PROPHYLAXIS AGAINST TRANSPLANT REJECTION
     Route: 065

REACTIONS (23)
  - Vulval cancer [Unknown]
  - Arrhythmia [Unknown]
  - Polyomavirus-associated nephropathy [Unknown]
  - Tuberculosis [Unknown]
  - Abdominal infection [Unknown]
  - Embolism venous [Unknown]
  - Myocardial infarction [Unknown]
  - Cytopenia [Unknown]
  - Diabetes mellitus [Unknown]
  - Clostridium difficile colitis [Unknown]
  - Gastrointestinal obstruction [Unknown]
  - Basal cell carcinoma [Unknown]
  - Papillary renal cell carcinoma [Unknown]
  - Intestinal fistula [Unknown]
  - Pancreatitis [Unknown]
  - Peritonitis [Unknown]
  - Hepatocellular injury [Unknown]
  - Pneumonia [Unknown]
  - Cytomegalovirus infection [Unknown]
  - Erysipelas [Unknown]
  - Cholestasis [Unknown]
  - B-cell lymphoma [Unknown]
  - Cerebrovascular accident [Unknown]
